FAERS Safety Report 16112492 (Version 1)
Quarter: 2019Q1

REPORT INFORMATION
  Report Type: Spontaneous
  Country: US (occurrence: US)
  Receive Date: 20190325
  Receipt Date: 20190325
  Transmission Date: 20190418
  Serious: No
  Sender: FDA-Public Use
  Company Number: US-PFIZER INC-2019113869

PATIENT
  Sex: Female

DRUGS (1)
  1. GEODON [Suspect]
     Active Substance: ZIPRASIDONE HYDROCHLORIDE\ZIPRASIDONE MESYLATE
     Indication: DEPRESSION
     Dosage: 1 DF, 1X/DAY (AT ABOUT REALLY EVENING)
     Route: 048
     Dates: start: 2009

REACTIONS (3)
  - Abnormal behaviour [Unknown]
  - Stress [Unknown]
  - Depressed mood [Unknown]
